APPROVED DRUG PRODUCT: CISATRACURIUM BESYLATE PRESERVATIVE FREE
Active Ingredient: CISATRACURIUM BESYLATE
Strength: EQ 10MG BASE/ML
Dosage Form/Route: INJECTABLE;INJECTION
Application: A206791 | Product #002 | TE Code: AP
Applicant: SOMERSET THERAPEUTICS LLC
Approved: Feb 20, 2019 | RLD: No | RS: No | Type: RX